FAERS Safety Report 5059303-2 (Version None)
Quarter: 2006Q3

REPORT INFORMATION
  Report Type: 
  Country: None (occurrence: None)
  Receive Date: 20060724
  Receipt Date: 20060712
  Transmission Date: 20061208
  Serious: Yes (Life-Threatening, Hospitalization)
  Sender: FDA-Public Use
  Company Number: US-JNJFOC-20060702724

PATIENT
  Sex: Male
  Weight: 138.8 kg

DRUGS (8)
  1. REMICADE [Suspect]
     Indication: RHEUMATOID ARTHRITIS
  2. PREDNISONE [Concomitant]
  3. FOLIC ACID [Concomitant]
  4. AMIODARONE HCL [Concomitant]
  5. PROTONIX [Concomitant]
  6. VICODIN [Concomitant]
     Indication: BACK PAIN
  7. PLAVIX [Concomitant]
  8. ASPIRIN [Concomitant]

REACTIONS (1)
  - INTESTINAL ULCER [None]
